FAERS Safety Report 17138801 (Version 1)
Quarter: 2019Q4

REPORT INFORMATION
  Report Type: Spontaneous
  Country: US (occurrence: US)
  Receive Date: 20191210
  Receipt Date: 20191210
  Transmission Date: 20200122
  Serious: Yes (Hospitalization, Other)
  Sender: FDA-Public Use
  Company Number: None

PATIENT
  Age: 32 Year
  Sex: Female
  Weight: 62.5 kg

DRUGS (1)
  1. FERRIC CARBOXYMALTOSE [Suspect]
     Active Substance: FERRIC CARBOXYMALTOSE
     Route: 041
     Dates: start: 20190725, end: 20190808

REACTIONS (3)
  - Lethargy [None]
  - Asthenia [None]
  - Blood phosphorus decreased [None]

NARRATIVE: CASE EVENT DATE: 20190822
